FAERS Safety Report 18028691 (Version 3)
Quarter: 2021Q1

REPORT INFORMATION
  Report Type: Spontaneous
  Country: US (occurrence: US)
  Receive Date: 20200716
  Receipt Date: 20210308
  Transmission Date: 20210419
  Serious: No
  Sender: FDA-Public Use
  Company Number: US-ASTRAZENECA-2020SE81174

PATIENT
  Sex: Male

DRUGS (1)
  1. BYDUREON BCISE [Suspect]
     Active Substance: EXENATIDE
     Dosage: 2.0MG UNKNOWN
     Route: 058

REACTIONS (4)
  - Incorrect dose administered by device [Unknown]
  - Device leakage [Unknown]
  - Blood glucose increased [Unknown]
  - Device defective [Unknown]

NARRATIVE: CASE EVENT DATE: 20200616
